FAERS Safety Report 10420672 (Version 1)
Quarter: 2014Q3

REPORT INFORMATION
  Report Type: Spontaneous
  Country: US (occurrence: None)
  Receive Date: 20140829
  Receipt Date: 20140829
  Transmission Date: 20150326
  Serious: Yes (Other)
  Sender: FDA-Public Use
  Company Number: None

PATIENT
  Age: 3 Year
  Sex: Male
  Weight: 18.14 kg

DRUGS (1)
  1. VICKS VAPOPADS [Suspect]
     Active Substance: CEDAR LEAF OIL\ETHYLENE GLYCOL\EUCALYPTUS OIL\MENTHOL
     Indication: NASOPHARYNGITIS

REACTIONS (5)
  - Product formulation issue [None]
  - Hypersensitivity [None]
  - Dyspnoea [None]
  - Crying [None]
  - Wheezing [None]

NARRATIVE: CASE EVENT DATE: 20140827
